FAERS Safety Report 5369610-1 (Version None)
Quarter: 2007Q2

REPORT INFORMATION
  Report Type: 
  Country: None (occurrence: None)
  Receive Date: 20070621
  Receipt Date: 20070606
  Transmission Date: 20071010
  Serious: Yes (Hospitalization)
  Sender: FDA-Public Use
  Company Number: SPV1-2007-03213

PATIENT
  Age: 7 Year
  Sex: Male

DRUGS (1)
  1. DAYTRANA [Suspect]
     Dates: end: 20070531

REACTIONS (3)
  - AKATHISIA [None]
  - BLOOD PRESSURE INCREASED [None]
  - DYSTONIA [None]
